FAERS Safety Report 8469341-5 (Version None)
Quarter: 2012Q2

REPORT INFORMATION
  Report Type: 
  Country: None (occurrence: None)
  Receive Date: 20120621
  Receipt Date: 20120621
  Transmission Date: 20120825
  Serious: Yes (Other)
  Sender: FDA-Public Use
  Company Number: None

PATIENT
  Sex: Female
  Weight: 78.0187 kg

DRUGS (1)
  1. EQUATE VAGICAINE MAXIMUM STRENGTH [Suspect]
     Indication: PRURITUS
     Dosage: 1 INCH STRIP 3-4 TIMES A DAY
     Dates: start: 20120601

REACTIONS (6)
  - VULVOVAGINAL SWELLING [None]
  - PRURITUS [None]
  - RASH [None]
  - PAIN [None]
  - FEELING HOT [None]
  - ANAL PRURITUS [None]
